FAERS Safety Report 4648610-0 (Version None)
Quarter: 2005Q2

REPORT INFORMATION
  Report Type: 
  Country: None (occurrence: None)
  Receive Date: 20050429
  Receipt Date: 20040903
  Transmission Date: 20051028
  Serious: Yes (Life-Threatening, Hospitalization)
  Sender: FDA-Public Use
  Company Number: 200412023DE

PATIENT
  Age: 41 Year
  Sex: Male
  Weight: 80 kg

DRUGS (4)
  1. KETEK [Suspect]
     Indication: INFLUENZA
     Route: 048
     Dates: start: 20040528, end: 20040606
  2. KETEK [Suspect]
     Indication: TONSILLITIS
     Route: 048
     Dates: start: 20040528, end: 20040606
  3. HOMEOPATIC PREPARATION [Concomitant]
     Indication: INFLUENZA
     Dates: start: 20040501, end: 20040501
  4. HOMEOPATIC PREPARATION [Concomitant]
     Indication: SINUSITIS
     Dates: start: 20040501, end: 20040501

REACTIONS (34)
  - BRAIN OEDEMA [None]
  - CEREBRAL HAEMORRHAGE [None]
  - CSF LACTATE INCREASED [None]
  - CSF LYMPHOCYTE COUNT ABNORMAL [None]
  - CSF NEUTROPHIL COUNT POSITIVE [None]
  - CSF PROTEIN INCREASED [None]
  - CSF WHITE BLOOD CELL COUNT INCREASED [None]
  - CYTOMEGALOVIRUS ANTIBODY POSITIVE [None]
  - DEPRESSED LEVEL OF CONSCIOUSNESS [None]
  - DISORIENTATION [None]
  - DISTURBANCE IN ATTENTION [None]
  - EMPYEMA [None]
  - EPSTEIN-BARR VIRUS ANTIBODY POSITIVE [None]
  - EUPHORIC MOOD [None]
  - HEADACHE [None]
  - HEMIPARESIS [None]
  - HERPES SIMPLEX [None]
  - HERPES SIMPLEX SEROLOGY POSITIVE [None]
  - INTRACRANIAL VENOUS SINUS THROMBOSIS [None]
  - LOSS OF CONSCIOUSNESS [None]
  - LYMPHOCYTE COUNT DECREASED [None]
  - MEMORY IMPAIRMENT [None]
  - MONOCYTE PERCENTAGE INCREASED [None]
  - NEUROLOGICAL SYMPTOM [None]
  - NUCLEAR MAGNETIC RESONANCE IMAGING BRAIN ABNORMAL [None]
  - PAIN [None]
  - PLATELET COUNT INCREASED [None]
  - PSYCHOMOTOR RETARDATION [None]
  - PUPILS UNEQUAL [None]
  - SOMNOLENCE [None]
  - STAPHYLOCOCCAL INFECTION [None]
  - SUBDURAL EFFUSION [None]
  - SUBDURAL HAEMATOMA [None]
  - WHITE BLOOD CELL COUNT INCREASED [None]
